FAERS Safety Report 9283988 (Version 3)
Quarter: 2013Q4

REPORT INFORMATION
  Report Type: Spontaneous
  Country: US (occurrence: US)
  Receive Date: 20130510
  Receipt Date: 20131011
  Transmission Date: 20140711
  Serious: Yes (Death, Hospitalization, Other)
  Sender: FDA-Public Use
  Company Number: US-JNJFOC-20130500867

PATIENT
  Age: 58 Year
  Sex: Female

DRUGS (7)
  1. INFLIXIMAB, RECOMBINANT [Suspect]
     Indication: ENTERITIS
     Dosage: THIRD INFUSION
     Route: 042
     Dates: start: 20110902
  2. INFLIXIMAB, RECOMBINANT [Suspect]
     Indication: ENTERITIS
     Dosage: SECOND INFUSION
     Route: 042
     Dates: start: 20110817, end: 201108
  3. INFLIXIMAB, RECOMBINANT [Suspect]
     Indication: ENTERITIS
     Dosage: FIRST INFUSION
     Route: 042
  4. GLUCOCORTICOIDS [Suspect]
     Indication: ENTERITIS
     Route: 065
  5. STEROIDS NOS [Suspect]
     Indication: ENTERITIS
     Route: 065
     Dates: start: 201108, end: 201108
  6. HYDROCORTISONE [Concomitant]
     Route: 042
  7. BUDESONIDE [Concomitant]
     Route: 048

REACTIONS (13)
  - Coma [Fatal]
  - Hypoxia [Unknown]
  - Hypotension [Recovered/Resolved]
  - Cytomegalovirus infection [Unknown]
  - Zygomycosis [Unknown]
  - Pneumocystis jirovecii pneumonia [Unknown]
  - Mucous membrane disorder [Unknown]
  - Generalised oedema [Recovered/Resolved]
  - Pleural effusion [Recovered/Resolved]
  - Respiratory distress [Unknown]
  - Bradycardia [Unknown]
  - Fusarium infection [Unknown]
  - Drug ineffective [Unknown]
